FAERS Safety Report 5243789-4 (Version None)
Quarter: 2007Q1

REPORT INFORMATION
  Report Type: 
  Country: None (occurrence: None)
  Receive Date: 20070222
  Receipt Date: 20070213
  Transmission Date: 20070707
  Serious: Yes (Other)
  Sender: FDA-Public Use
  Company Number: US-KINGPHARMUSA00001-K200700170

PATIENT

DRUGS (4)
  1. ALTACE [Suspect]
     Route: 048
  2. HYDROCHLOROTHIAZIDE [Suspect]
     Route: 048
  3. DEHYDROEPIANDROSTERONE [Concomitant]
     Dosage: 25 MG, UNK
  4. Q10 [Concomitant]
     Dosage: 60 MG, UNK
     Route: 048

REACTIONS (4)
  - ANOSMIA [None]
  - DRUG INEFFECTIVE [None]
  - DYSGEUSIA [None]
  - HYPERTENSIVE CRISIS [None]
